FAERS Safety Report 14258853 (Version 1)
Quarter: 2017Q4

REPORT INFORMATION
  Report Type: Spontaneous
  Country: US (occurrence: US)
  Receive Date: 20171206
  Receipt Date: 20171206
  Transmission Date: 20180321
  Serious: Yes (Other)
  Sender: FDA-Public Use
  Company Number: None

PATIENT
  Age: 33 Year
  Sex: Female
  Weight: 93.6 kg

DRUGS (1)
  1. AZO URINARY TRACT DEFENSE ANTIBACTERIAL PROTECTION [Suspect]
     Active Substance: METHENAMINE\SODIUM SALICYLATE
     Indication: CYSTITIS
     Route: 066
     Dates: start: 20171203, end: 20171205

REACTIONS (1)
  - False negative investigation result [None]

NARRATIVE: CASE EVENT DATE: 20171206
